FAERS Safety Report 7548480-7 (Version None)
Quarter: 2011Q2

REPORT INFORMATION
  Report Type: 
  Country: None (occurrence: None)
  Receive Date: 20110608
  Receipt Date: 20110526
  Transmission Date: 20111010
  Serious: Yes (Other)
  Sender: FDA-Public Use
  Company Number: GER/GER/11/0018376

PATIENT
  Age: 68 Year
  Sex: Male
  Weight: 90 kg

DRUGS (4)
  1. LORANO (LORATADINE) [Suspect]
     Indication: SEASONAL ALLERGY
  2. MAGNESIUM (MAGNESIUM) [Concomitant]
  3. CETIRIZIN BETA (CETIRIZINE HYDROCHLORIDE) [Suspect]
     Indication: SEASONAL ALLERGY
     Dosage: 10 MG, ORAL
     Route: 048
     Dates: start: 20110201
  4. BALDRIPARAN (BALDRIPARAN /00712901/) [Concomitant]

REACTIONS (2)
  - ARRHYTHMIA [None]
  - EXTRASYSTOLES [None]
